FAERS Safety Report 10448518 (Version 2)
Quarter: 2014Q3

REPORT INFORMATION
  Report Type: Report from Study
  Country: US (occurrence: US)
  Receive Date: 20140911
  Receipt Date: 20140911
  Transmission Date: 20150326
  Serious: Yes (Other)
  Sender: FDA-Public Use
  Company Number: US-ALEXION PHARMACEUTICALS INC-A201002261

PATIENT
  Sex: Female

DRUGS (1)
  1. SOLIRIS [Suspect]
     Active Substance: ECULIZUMAB
     Indication: PAROXYSMAL NOCTURNAL HAEMOGLOBINURIA
     Dosage: 1200 MG, UNK
     Route: 042

REACTIONS (7)
  - Fatigue [Unknown]
  - Jaundice [Unknown]
  - Back pain [Unknown]
  - Transfusion [Unknown]
  - Haemoglobinuria [Unknown]
  - Dysphagia [Unknown]
  - Depressed mood [Unknown]
